FAERS Safety Report 8759608 (Version 8)
Quarter: 2014Q1

REPORT INFORMATION
  Report Type: Spontaneous
  Country: US (occurrence: US)
  Receive Date: 20120829
  Receipt Date: 20140212
  Transmission Date: 20141002
  Serious: Yes (Hospitalization, Disabling, Other)
  Sender: FDA-Public Use
  Company Number: US-009507513-1208USA009472

PATIENT
  Sex: Female
  Weight: 62 kg

DRUGS (5)
  1. FOSAMAX [Suspect]
     Indication: OSTEOPOROSIS
     Dosage: 70 MG, QW
     Route: 048
     Dates: start: 2000
  2. FOSAMAX [Suspect]
     Indication: OSTEOPENIA
     Dosage: UNK, QD
     Route: 048
     Dates: start: 200004
  3. ALENDRONATE SODIUM [Suspect]
     Indication: OSTEOPOROSIS
     Route: 048
  4. ALENDRONATE SODIUM [Suspect]
     Indication: OSTEOPENIA
  5. CALCIUM (UNSPECIFIED) [Concomitant]
     Indication: OSTEOPOROSIS
     Dosage: 600 MG, UNK

REACTIONS (40)
  - Tooth abscess [Unknown]
  - Endodontic procedure [Unknown]
  - Vitamin D deficiency [Unknown]
  - Adverse event [Unknown]
  - Hypertension [Unknown]
  - Blood cholesterol increased [Unknown]
  - Aortic stenosis [Unknown]
  - Herpes zoster [Unknown]
  - Irritable bowel syndrome [Unknown]
  - Bursitis [Unknown]
  - Cardiovascular disorder [Unknown]
  - Polyarthritis [Unknown]
  - Bursitis [Unknown]
  - Intervertebral disc degeneration [Unknown]
  - Scoliosis [Unknown]
  - Adverse drug reaction [Unknown]
  - Pleural disorder [Unknown]
  - Vertebral wedging [Unknown]
  - Bone lesion [Unknown]
  - Mitral valve prolapse [Unknown]
  - Anal stenosis [Unknown]
  - Cardiac murmur [Unknown]
  - Biopsy cervix [Unknown]
  - Hypothyroidism [Unknown]
  - Rheumatic fever [Unknown]
  - Pain in extremity [Unknown]
  - Muscle spasms [Unknown]
  - Back pain [Unknown]
  - Drug hypersensitivity [Unknown]
  - Gastrooesophageal reflux disease [Unknown]
  - Constipation [Not Recovered/Not Resolved]
  - Intramedullary rod insertion [Not Recovered/Not Resolved]
  - Osteoporosis [Not Recovered/Not Resolved]
  - Stress fracture [Not Recovered/Not Resolved]
  - Femur fracture [Not Recovered/Not Resolved]
  - Low turnover osteopathy [Not Recovered/Not Resolved]
  - Pneumonia [Unknown]
  - Syncope [Unknown]
  - Femur fracture [Not Recovered/Not Resolved]
  - Hypersensitivity [Unknown]
